FAERS Safety Report 6372396-5 (Version None)
Quarter: 2009Q3

REPORT INFORMATION
  Report Type: 
  Country: None (occurrence: None)
  Receive Date: 20090924
  Receipt Date: 20081103
  Transmission Date: 20100115
  Serious: No
  Sender: FDA-Public Use
  Company Number: US-ASTRAZENECA-2008UW21586

PATIENT
  Age: 16326 Day
  Sex: Female

DRUGS (4)
  1. SEROQUEL [Suspect]
     Route: 048
  2. SEROQUEL [Suspect]
     Route: 048
  3. LAMICTAL [Concomitant]
     Dates: start: 20080821
  4. KLONOPIN [Concomitant]
     Dates: start: 20040916

REACTIONS (3)
  - DYSKINESIA [None]
  - DYSTONIA [None]
  - EYELID FUNCTION DISORDER [None]
